FAERS Safety Report 9514594 (Version 1)
Quarter: 2013Q3

REPORT INFORMATION
  Report Type: Spontaneous
  Country: US (occurrence: US)
  Receive Date: 20130911
  Receipt Date: 20130911
  Transmission Date: 20140515
  Serious: Yes (Other)
  Sender: FDA-Public Use
  Company Number: US-ASTRAZENECA-2013SE67358

PATIENT
  Age: 78 Year
  Sex: Male
  Weight: 72.1 kg

DRUGS (7)
  1. NEXIUM [Suspect]
     Indication: GASTROOESOPHAGEAL REFLUX DISEASE
     Route: 048
     Dates: start: 201303
  2. METOPROLOL [Suspect]
     Indication: BLOOD PRESSURE ABNORMAL
     Dosage: 12.5 BID
     Route: 048
     Dates: start: 201302
  3. SYNTHROID [Concomitant]
     Indication: THYROID DISORDER
  4. REGLAN [Concomitant]
     Indication: GASTRIC DISORDER
     Route: 048
     Dates: start: 201303
  5. LASIX [Concomitant]
     Indication: PULMONARY OEDEMA
  6. DIABETES SHOT NAME UNKNOWN [Concomitant]
     Indication: BLOOD GLUCOSE ABNORMAL
     Dosage: UNKNOWN BID
     Route: 058
  7. ZOCOR [Concomitant]
     Indication: BLOOD CHOLESTEROL ABNORMAL
     Route: 048

REACTIONS (6)
  - Pneumonia [Unknown]
  - Aspiration [Unknown]
  - Gastric ulcer [Unknown]
  - Weight decreased [Unknown]
  - Vomiting [Unknown]
  - Circumstance or information capable of leading to medication error [Unknown]
